FAERS Safety Report 7206849-4 (Version None)
Quarter: 2011Q1

REPORT INFORMATION
  Report Type: 
  Country: None (occurrence: None)
  Receive Date: 20110103
  Receipt Date: 20090810
  Transmission Date: 20110831
  Serious: No
  Sender: FDA-Public Use
  Company Number: US-PFIZER INC-2009232232

PATIENT
  Sex: Female

DRUGS (2)
  1. CODEINE POLYSULFONATE [Suspect]
     Dosage: UNK
  2. PENICILLIN [Suspect]
     Dosage: UNK

REACTIONS (1)
  - HYPERSENSITIVITY [None]
